FAERS Safety Report 15848249 (Version 4)
Quarter: 2021Q1

REPORT INFORMATION
  Report Type: Spontaneous
  Country: US (occurrence: US)
  Receive Date: 20190121
  Receipt Date: 20210219
  Transmission Date: 20210419
  Serious: No
  Sender: FDA-Public Use
  Company Number: US-PFIZER INC-2019017533

PATIENT
  Age: 72 Year
  Sex: Female

DRUGS (5)
  1. LYRICA [Suspect]
     Active Substance: PREGABALIN
     Indication: PAIN
     Dosage: 150 MG, 3X/DAY
     Route: 048
  2. LYRICA [Suspect]
     Active Substance: PREGABALIN
     Indication: NERVOUS SYSTEM DISORDER
     Dosage: 100 MG
  3. LYRICA [Suspect]
     Active Substance: PREGABALIN
     Indication: NEUROPATHY PERIPHERAL
     Dosage: 75 MG, UNK
  4. CLONIDINE. [Concomitant]
     Active Substance: CLONIDINE
     Indication: HYPERTENSION
     Dosage: 0.2 MG, 3X/DAY
  5. WARFARIN [Concomitant]
     Active Substance: WARFARIN
     Indication: ANTICOAGULANT THERAPY
     Dosage: 8 MG, 1X/DAY, (TAKE TWO WARFARIN ONE IS 1 MG AND OTHER 6 MG AND TOTAL OF 8 MG A DAY)

REACTIONS (7)
  - Crying [Unknown]
  - Incorrect dose administered [Unknown]
  - Insomnia [Unknown]
  - Pain in extremity [Unknown]
  - Expired product administered [Unknown]
  - Feeling abnormal [Unknown]
  - Pain [Unknown]
